FAERS Safety Report 5929875-1 (Version None)
Quarter: 2008Q4

REPORT INFORMATION
  Report Type: 
  Country: None (occurrence: None)
  Receive Date: 20081024
  Receipt Date: 20081012
  Transmission Date: 20090506
  Serious: Yes (Hospitalization, Other)
  Sender: FDA-Public Use
  Company Number: US-PFIZER INC-2008021155

PATIENT
  Sex: Female

DRUGS (5)
  1. CHANTIX [Suspect]
     Indication: SMOKING CESSATION THERAPY
     Dates: start: 20071101
  2. TRAZODONE HCL [Concomitant]
  3. GEODON [Concomitant]
  4. DRUG, UNSPECIFIED [Concomitant]
  5. VITAMINS [Concomitant]

REACTIONS (3)
  - CHEST X-RAY ABNORMAL [None]
  - DEPRESSION [None]
  - FIBROMYALGIA [None]
